FAERS Safety Report 5886144-6 (Version None)
Quarter: 2008Q3

REPORT INFORMATION
  Report Type: 
  Country: None (occurrence: None)
  Receive Date: 20080917
  Receipt Date: 20080912
  Transmission Date: 20090109
  Serious: Yes (Other)
  Sender: FDA-Public Use
  Company Number: US-BAYER-200830683NA

PATIENT
  Age: 62 Year
  Sex: Female

DRUGS (6)
  1. AVELOX [Suspect]
     Indication: ACCIDENTAL EXPOSURE
     Dosage: TOTAL DAILY DOSE: 6 G  UNIT DOSE: 400 MG
     Route: 048
     Dates: start: 20080126
  2. PROSCAR [Concomitant]
  3. FLOMAX [Concomitant]
  4. BENICAR [Concomitant]
  5. CEFDINIR [Concomitant]
  6. ZITHROMAX [Concomitant]

REACTIONS (3)
  - ACCIDENTAL OVERDOSE [None]
  - ALTERED STATE OF CONSCIOUSNESS [None]
  - NAUSEA [None]
